FAERS Safety Report 15165432 (Version 1)
Quarter: 2018Q3

REPORT INFORMATION
  Report Type: Spontaneous
  Country: RU (occurrence: RU)
  Receive Date: 20180719
  Receipt Date: 20180719
  Transmission Date: 20181010
  Serious: Yes (Hospitalization, Other)
  Sender: FDA-Public Use
  Company Number: RU-ASTRAZENECA-2017SF32316

PATIENT
  Age: 49 Year
  Sex: Female
  Weight: 81 kg

DRUGS (13)
  1. LOSARTAN. [Concomitant]
     Active Substance: LOSARTAN
  2. DOMPERIDONE [Concomitant]
     Active Substance: DOMPERIDONE
  3. ROSUVASTATIN. [Concomitant]
     Active Substance: ROSUVASTATIN
  4. BRILINTA [Suspect]
     Active Substance: TICAGRELOR
     Indication: MYOCARDIAL INFARCTION
     Route: 048
     Dates: start: 20170530
  5. INDAPAMIDE. [Concomitant]
     Active Substance: INDAPAMIDE
  6. MEXIDOL [Concomitant]
  7. ALLOPURINOL. [Concomitant]
     Active Substance: ALLOPURINOL
  8. LISINOPRIL. [Concomitant]
     Active Substance: LISINOPRIL
  9. VALSARTAN. [Concomitant]
     Active Substance: VALSARTAN
  10. VALERIAN AND CORVALOL [Concomitant]
  11. BETALOC ZOK [Concomitant]
     Active Substance: METOPROLOL SUCCINATE
  12. DIROTON [Concomitant]
     Active Substance: LISINOPRIL
  13. AMLODIPINE [Concomitant]
     Active Substance: AMLODIPINE BESYLATE

REACTIONS (30)
  - Hypertension [Unknown]
  - Blood glucose increased [Not Recovered/Not Resolved]
  - Nephrolithiasis [Unknown]
  - Angina pectoris [Not Recovered/Not Resolved]
  - Myocardial ischaemia [Unknown]
  - Osteochondrosis [Unknown]
  - Vascular encephalopathy [Unknown]
  - Iron deficiency anaemia [Not Recovered/Not Resolved]
  - Cardiac failure chronic [Unknown]
  - Blood pressure fluctuation [Not Recovered/Not Resolved]
  - Ventricular enlargement [Not Recovered/Not Resolved]
  - Immune thrombocytopenic purpura [Unknown]
  - Gastric ulcer [Unknown]
  - Insomnia [Not Recovered/Not Resolved]
  - Cardiomegaly [Not Recovered/Not Resolved]
  - Hypercorticoidism [Unknown]
  - Vestibular disorder [Unknown]
  - Pyelonephritis chronic [Unknown]
  - Peripheral vascular disorder [Unknown]
  - Aortic arteriosclerosis [Unknown]
  - Headache [Unknown]
  - Feeling jittery [Unknown]
  - Pericarditis [Recovered/Resolved]
  - Purine metabolism disorder [Unknown]
  - Coagulopathy [Unknown]
  - Blood triglycerides increased [Not Recovered/Not Resolved]
  - Coronary artery occlusion [Unknown]
  - Dyspepsia [Not Recovered/Not Resolved]
  - Polyarthritis [Unknown]
  - Obesity [Unknown]

NARRATIVE: CASE EVENT DATE: 20170530
